FAERS Safety Report 12496248 (Version 2)
Quarter: 2016Q3

REPORT INFORMATION
  Report Type: Spontaneous
  Country: US (occurrence: US)
  Receive Date: 20160624
  Receipt Date: 20160715
  Transmission Date: 20161109
  Serious: No
  Sender: FDA-Public Use
  Company Number: US-JNJFOC-20160527639

PATIENT
  Age: 22 Year
  Sex: Female
  Weight: 63.5 kg

DRUGS (2)
  1. IMODIUM A-D [Suspect]
     Active Substance: LOPERAMIDE HYDROCHLORIDE
     Indication: DIARRHOEA
     Dosage: 1 LARGE BOTTLE
     Route: 048
  2. IMODIUM A-D [Suspect]
     Active Substance: LOPERAMIDE HYDROCHLORIDE
     Indication: NAUSEA
     Dosage: 1 LARGE BOTTLE
     Route: 048

REACTIONS (2)
  - Incorrect dose administered [Unknown]
  - Product use issue [Unknown]
